FAERS Safety Report 4861961-X (Version None)
Quarter: 2005Q4

REPORT INFORMATION
  Report Type: 
  Country: None (occurrence: None)
  Receive Date: 20051130
  Receipt Date: 20050609
  Transmission Date: 20060501
  Serious: Yes (Other)
  Sender: FDA-Public Use
  Company Number: PHEH2005US06606

PATIENT
  Age: 46 Year
  Sex: Female

DRUGS (3)
  1. LAMISIL [Suspect]
     Dosage: 250 MG, QD, ORAL
     Route: 048
  2. COMBIVIR [Concomitant]
  3. VIRACEPT [Concomitant]

REACTIONS (2)
  - CONDITION AGGRAVATED [None]
  - NEUTROPENIA [None]
